FAERS Safety Report 13381292 (Version 1)
Quarter: 2017Q1

REPORT INFORMATION
  Report Type: Spontaneous
  Country: US (occurrence: US)
  Receive Date: 20170329
  Receipt Date: 20170329
  Transmission Date: 20170429
  Serious: No
  Sender: FDA-Public Use
  Company Number: US-MYLANLABS-2017M1004522

PATIENT
  Age: 53 Year
  Sex: Female
  Weight: 113.38 kg

DRUGS (2)
  1. CELECOXIB. [Suspect]
     Active Substance: CELECOXIB
     Indication: ARTHRALGIA
  2. CELECOXIB. [Suspect]
     Active Substance: CELECOXIB
     Indication: IRITIS
     Dosage: 200 MG, QD
     Route: 048
     Dates: start: 2016, end: 20170110

REACTIONS (1)
  - Drug ineffective [Recovered/Resolved]

NARRATIVE: CASE EVENT DATE: 201701
